FAERS Safety Report 9208160 (Version 1)
Quarter: 2013Q2

REPORT INFORMATION
  Report Type: Spontaneous
  Country: US (occurrence: US)
  Receive Date: 20130403
  Receipt Date: 20130403
  Transmission Date: 20140414
  Serious: Yes (Other)
  Sender: FDA-Public Use
  Company Number: PHHY2013US031512

PATIENT
  Age: 53 Year
  Sex: Male

DRUGS (4)
  1. GABAPENTIN [Suspect]
     Indication: CENTRAL PAIN SYNDROME
  2. PREGABALIN [Suspect]
     Indication: CENTRAL PAIN SYNDROME
  3. AMITRIPTYLINE [Suspect]
     Indication: CENTRAL PAIN SYNDROME
  4. NORTRIPTYLINE [Suspect]
     Indication: CENTRAL PAIN SYNDROME

REACTIONS (4)
  - Sedation [Unknown]
  - Somnolence [Unknown]
  - Therapeutic response decreased [Unknown]
  - Cognitive disorder [None]
